FAERS Safety Report 11249615 (Version 1)
Quarter: 2015Q3

REPORT INFORMATION
  Report Type: Spontaneous
  Country: US (occurrence: US)
  Receive Date: 20150708
  Receipt Date: 20150708
  Transmission Date: 20151125
  Serious: No
  Sender: FDA-Public Use
  Company Number: US-ELI_LILLY_AND_COMPANY-US201010001498

PATIENT
  Age: 74 Year
  Sex: Male

DRUGS (11)
  1. DEXAMETHASONE. [Concomitant]
     Active Substance: DEXAMETHASONE
     Dosage: 4 MG, 2/D ON DAYS 2 AND 3
  2. ASPIRIN. [Concomitant]
     Active Substance: ASPIRIN
     Dosage: 81 MG, DAILY (1/D)
  3. FOLIC ACID. [Concomitant]
     Active Substance: FOLIC ACID
     Dosage: 1 MG, DAILY (1/D)
  4. VITAMIN B12 [Concomitant]
     Active Substance: CYANOCOBALAMIN
     Dosage: 100 UG, OTHER (EVERY 6 WEEKS)
  5. EYE DROPS [Concomitant]
     Active Substance: TETRAHYDROZOLINE HYDROCHLORIDE
  6. METOPROLOL [Concomitant]
     Active Substance: METOPROLOL
     Dosage: 25 MG, 2/D
  7. PRILOSEC [Concomitant]
     Active Substance: OMEPRAZOLE MAGNESIUM
     Dosage: 20 MG, DAILY (1/D)
  8. ALIMTA [Suspect]
     Active Substance: PEMETREXED DISODIUM
     Indication: LIP SQUAMOUS CELL CARCINOMA
     Dosage: 900 MG, OTHER (EVERY 3 WEEKS)
     Route: 065
     Dates: start: 20080227
  9. NIFEREX FORTE [Concomitant]
     Dosage: 1 D/F, 2/D
  10. AMBIEN [Concomitant]
     Active Substance: ZOLPIDEM TARTRATE
     Indication: INSOMNIA
     Dosage: UNK, AS NEEDED AT HOUR OF SLEEP
  11. TYLENOL                                 /SCH/ [Concomitant]
     Dosage: 500 MG, EVERY 4-6 HOURS AS NEEDED

REACTIONS (2)
  - Neuropathy peripheral [Unknown]
  - Off label use [Not Recovered/Not Resolved]
